FAERS Safety Report 12208557 (Version 2)
Quarter: 2016Q2

REPORT INFORMATION
  Report Type: Spontaneous
  Country: JP (occurrence: JP)
  Receive Date: 20160324
  Receipt Date: 20160613
  Transmission Date: 20160815
  Serious: Yes (Hospitalization)
  Sender: FDA-Public Use
  Company Number: JP-BAYER-2016-052637

PATIENT
  Age: 66 Year
  Sex: Male

DRUGS (4)
  1. WARFARIN [Interacting]
     Active Substance: WARFARIN
     Route: 048
  2. BAYASPIRIN [Interacting]
     Active Substance: ASPIRIN
     Indication: THROMBOSIS PROPHYLAXIS
     Dosage: UNK
  3. CILOSTAZOL. [Interacting]
     Active Substance: CILOSTAZOL
     Route: 048
  4. BAYASPIRIN [Suspect]
     Active Substance: ASPIRIN
     Indication: THROMBOSIS PROPHYLAXIS
     Dosage: 100 MG, QD
     Route: 048
     Dates: start: 2015

REACTIONS (5)
  - Haematochezia [Recovered/Resolved]
  - Labelled drug-drug interaction medication error [None]
  - Drug administration error [None]
  - Tumour ulceration [Recovered/Resolved]
  - Large intestinal ulcer haemorrhage [Recovered/Resolved]

NARRATIVE: CASE EVENT DATE: 20150501
